FAERS Safety Report 6784151-2 (Version None)
Quarter: 2010Q2

REPORT INFORMATION
  Report Type: 
  Country: None (occurrence: None)
  Receive Date: 20100622
  Receipt Date: 20100611
  Transmission Date: 20101027
  Serious: Yes (Hospitalization)
  Sender: FDA-Public Use
  Company Number: US-JNJFOC-20100302749

PATIENT
  Sex: Female
  Weight: 86.4 kg

DRUGS (9)
  1. DOXIL [Suspect]
     Indication: OVARIAN CANCER
     Route: 042
  2. ALL OTHER MEDICATION [Suspect]
     Indication: OVARIAN CANCER
  3. ONDANSETRON [Suspect]
     Indication: NAUSEA
     Route: 065
  4. DEXAMETHASONE ACETATE [Concomitant]
  5. HYDROCHLOROTHIAZIDE [Concomitant]
     Indication: OEDEMA
  6. SERTRALINE HCL [Concomitant]
     Indication: DEPRESSION
  7. ATENOLOL [Concomitant]
     Indication: BLOOD PRESSURE ABNORMAL
  8. PROCHLORPERAZINE [Concomitant]
     Indication: NAUSEA
  9. NON STEROIDAL ANTI-INFLAMMATORY DRUGS [Concomitant]

REACTIONS (2)
  - DEHYDRATION [None]
  - RENAL FAILURE ACUTE [None]
